FAERS Safety Report 14524817 (Version 1)
Quarter: 2018Q1

REPORT INFORMATION
  Report Type: Spontaneous
  Country: US (occurrence: US)
  Receive Date: 20180210
  Receipt Date: 20180210
  Transmission Date: 20180509
  Serious: No
  Sender: FDA-Public Use
  Company Number: None

PATIENT
  Age: 49 Year
  Sex: Female

DRUGS (1)
  1. ILARIS [Suspect]
     Active Substance: CANAKINUMAB
     Indication: PRODUCT USED FOR UNKNOWN INDICATION
     Dosage: 150 MG EVERY 8 WEEKS SUBCUTANEOUSLY
     Route: 058
     Dates: start: 20170101

REACTIONS (2)
  - Diarrhoea [None]
  - Arthralgia [None]

NARRATIVE: CASE EVENT DATE: 20180101
